FAERS Safety Report 8154923-0 (Version None)
Quarter: 2012Q1

REPORT INFORMATION
  Report Type: 
  Country: None (occurrence: None)
  Receive Date: 20120221
  Receipt Date: 20120216
  Transmission Date: 20120608
  Serious: No
  Sender: FDA-Public Use
  Company Number: PHEH2011US07941

PATIENT
  Sex: Female

DRUGS (12)
  1. TASIGNA [Suspect]
     Dosage: 200 MG, BID
     Dates: start: 20111001
  2. CITALOPRAM HYDROBROMIDE [Concomitant]
     Dosage: UNK UKN, UNK
  3. TRAMADOL HCL [Concomitant]
     Dosage: UNK UKN, UNK
  4. DEXLANSOPRAZOLE [Concomitant]
     Dosage: UNK UKN, UNK
  5. TASIGNA [Suspect]
     Indication: NEOPLASM MALIGNANT
     Dosage: 400 MG, BID
     Route: 048
     Dates: start: 20110610
  6. TASIGNA [Suspect]
     Dosage: 200 MG, QD
     Route: 048
     Dates: start: 20111001
  7. CELEBREX [Concomitant]
     Dosage: UNK UKN, UNK
  8. ATENOLOL [Concomitant]
     Dosage: UNK UKN, UNK
  9. ALLOPURINOL [Concomitant]
  10. TRIAMTEREN [Concomitant]
     Dosage: UNK UKN, UNK
  11. HYDROMORPHONE HCL [Concomitant]
     Dosage: UNK UKN, UNK
  12. HYDROCHLOROTHIAZIDE [Concomitant]
     Dosage: UNK UKN, UNK

REACTIONS (4)
  - PAIN IN EXTREMITY [None]
  - FATIGUE [None]
  - GAIT DISTURBANCE [None]
  - RASH [None]
